FAERS Safety Report 16034684 (Version 2)
Quarter: 2019Q1

REPORT INFORMATION
  Report Type: Report from Study
  Country: FR (occurrence: FR)
  Receive Date: 20190305
  Receipt Date: 20190308
  Transmission Date: 20190418
  Serious: Yes (Hospitalization, Other)
  Sender: FDA-Public Use
  Company Number: FR-MYLANLABS-2019M1018790

PATIENT
  Age: 73 Year
  Sex: Female

DRUGS (5)
  1. DOXORUBICIN [Concomitant]
     Active Substance: DOXORUBICIN
     Indication: SOFT TISSUE SARCOMA
     Dosage: UNK
  2. GEMCITABINE [Suspect]
     Active Substance: GEMCITABINE\GEMCITABINE HYDROCHLORIDE
     Indication: SOFT TISSUE SARCOMA
     Dosage: 900 MG/M2 ON DAY 1
     Route: 042
     Dates: start: 20180423, end: 20180423
  3. GEMCITABINE [Suspect]
     Active Substance: GEMCITABINE\GEMCITABINE HYDROCHLORIDE
     Dosage: 900 MG/M2 ON DAY 8
     Route: 042
     Dates: start: 20180716, end: 20180716
  4. DOCETAXEL. [Suspect]
     Active Substance: DOCETAXEL
     Indication: SOFT TISSUE SARCOMA
     Dosage: 75 MG/M2 ON DAY 8
     Route: 042
     Dates: start: 20180716, end: 20180716
  5. DOCETAXEL. [Suspect]
     Active Substance: DOCETAXEL
     Dosage: 75 MG/M2 ON DAY 1
     Route: 042

REACTIONS (2)
  - Renal failure [Not Recovered/Not Resolved]
  - Petechiae [Not Recovered/Not Resolved]

NARRATIVE: CASE EVENT DATE: 20180716
